FAERS Safety Report 4352699-6 (Version None)
Quarter: 2004Q2

REPORT INFORMATION
  Report Type: 
  Country: None (occurrence: None)
  Receive Date: 20040504
  Receipt Date: 20040426
  Transmission Date: 20050107
  Serious: Yes (Other)
  Sender: FDA-Public Use
  Company Number: FR-BRISTOL-MYERS SQUIBB COMPANY-12570446

PATIENT
  Age: 45 Year
  Sex: Male

DRUGS (3)
  1. ELISOR TABS 20 MG [Suspect]
     Route: 048
     Dates: start: 20040401
  2. APROVEL TABS 150 MG [Suspect]
     Route: 048
     Dates: start: 20040401
  3. GLUCOPHAGE [Suspect]
     Route: 048
     Dates: start: 20040401

REACTIONS (1)
  - BLOOD CREATINE PHOSPHOKINASE INCREASED [None]
